FAERS Safety Report 5885217-1 (Version None)
Quarter: 2008Q3

REPORT INFORMATION
  Report Type: 
  Country: None (occurrence: None)
  Receive Date: 20080916
  Receipt Date: 20080812
  Transmission Date: 20090109
  Serious: Yes (Hospitalization, Other)
  Sender: FDA-Public Use
  Company Number: US-AMGEN-US068772

PATIENT
  Sex: Female

DRUGS (16)
  1. ENBREL [Suspect]
     Indication: RHEUMATOID ARTHRITIS
     Route: 058
     Dates: start: 20030103, end: 20030324
  2. HUMIRA [Suspect]
     Route: 058
     Dates: start: 20030324, end: 20030701
  3. METHOTREXATE [Suspect]
     Route: 048
     Dates: start: 20020312, end: 20040517
  4. PREDNISONE TAB [Suspect]
     Route: 048
     Dates: start: 20020301
  5. BEXTRA [Concomitant]
     Route: 065
     Dates: start: 20030701, end: 20041206
  6. ACIPHEX [Concomitant]
     Route: 065
  7. ATENOLOL [Concomitant]
     Route: 065
  8. FOLIC ACID [Concomitant]
     Route: 065
     Dates: end: 20040517
  9. CALCIUM [Concomitant]
     Route: 065
  10. PLAQUENIL [Concomitant]
     Route: 065
     Dates: start: 20040908
  11. ALPRAZOLAM [Concomitant]
     Route: 065
  12. PREMARIN [Concomitant]
     Route: 065
  13. ZYRTEC [Concomitant]
     Route: 065
     Dates: start: 20030829, end: 20030831
  14. FOSAMAX [Concomitant]
     Route: 065
     Dates: start: 20050301
  15. VITAMIN D [Concomitant]
     Route: 065
     Dates: start: 20051108
  16. ARAVA [Concomitant]
     Dates: start: 20060209

REACTIONS (3)
  - HERPES ZOSTER [None]
  - LUNG INFILTRATION [None]
  - RENAL FAILURE [None]
